FAERS Safety Report 5302078-X (Version None)
Quarter: 2007Q2

REPORT INFORMATION
  Report Type: 
  Country: None (occurrence: None)
  Receive Date: 20070419
  Receipt Date: 20070416
  Transmission Date: 20071010
  Serious: Yes (Life-Threatening, Other)
  Sender: FDA-Public Use
  Company Number: US-GLAXOSMITHKLINE-A0645599A

PATIENT
  Age: 69 Year
  Sex: Female

DRUGS (8)
  1. COREG CR [Suspect]
     Indication: CARDIAC FAILURE CONGESTIVE
     Dosage: 40MG PER DAY
     Route: 048
     Dates: start: 20070330, end: 20070331
  2. COREG [Suspect]
     Indication: CARDIAC FAILURE CONGESTIVE
     Dosage: 3.125MG TWICE PER DAY
     Route: 048
     Dates: start: 20050706, end: 20070329
  3. PREMARIN [Concomitant]
  4. MULTI-VITAMINS [Concomitant]
  5. HYDROCHLOROTHIAZIDE [Concomitant]
     Dosage: 50MG PER DAY
     Dates: start: 20030204
  6. POTASSIUM CHLORIDE [Concomitant]
     Dosage: 20MEQ THREE TIMES PER DAY
     Dates: start: 20030204
  7. FOSAMAX [Concomitant]
     Dosage: 70MG WEEKLY
  8. PROTONIX [Concomitant]
     Dosage: 40MG PER DAY

REACTIONS (6)
  - ANGIOEDEMA [None]
  - EYE OEDEMA [None]
  - HEADACHE [None]
  - NAUSEA [None]
  - RASH ERYTHEMATOUS [None]
  - SWOLLEN TONGUE [None]
